FAERS Safety Report 7946603-9 (Version None)
Quarter: 2011Q4

REPORT INFORMATION
  Report Type: 
  Country: None (occurrence: None)
  Receive Date: 20111123
  Receipt Date: 20111109
  Transmission Date: 20120403
  Serious: Yes (Congenital Anomaly, Other)
  Sender: FDA-Public Use
  Company Number: 1000025610

PATIENT
  Sex: Male

DRUGS (1)
  1. CITALOPRAM HYDROBROMIDE [Suspect]
     Dosage: 20 MG (20 MG,1 IN 1 D),TRANSPLACENTAL
     Route: 064
     Dates: start: 20100701, end: 20110701

REACTIONS (6)
  - ATRIAL SEPTAL DEFECT [None]
  - NEONATAL RESPIRATORY DISTRESS SYNDROME [None]
  - DEVELOPMENTAL DELAY [None]
  - MATERNAL DRUGS AFFECTING FOETUS [None]
  - PULMONARY ARTERY STENOSIS CONGENITAL [None]
  - CAESAREAN SECTION [None]
